FAERS Safety Report 15980489 (Version 2)
Quarter: 2019Q3

REPORT INFORMATION
  Report Type: Report from Study
  Country: US (occurrence: US)
  Receive Date: 20190219
  Receipt Date: 20190711
  Transmission Date: 20191004
  Serious: Yes (Hospitalization, Other)
  Sender: FDA-Public Use
  Company Number: US-PFIZER INC-2019071598

PATIENT
  Age: 62 Year
  Sex: Female

DRUGS (1)
  1. IBRANCE [Suspect]
     Active Substance: PALBOCICLIB
     Indication: BREAST CANCER
     Dosage: 75 MG, CYCLIC (FOR 21 DAYS ON, 7 OFF)
     Route: 048
     Dates: start: 201811

REACTIONS (10)
  - Haemoglobin decreased [Unknown]
  - Cough [Unknown]
  - Abnormal faeces [Unknown]
  - Rhinorrhoea [Unknown]
  - White blood cell count decreased [Unknown]
  - Sinusitis [Unknown]
  - Fatigue [Unknown]
  - Urine odour abnormal [Unknown]
  - Pleural effusion [Unknown]
  - Dyspnoea [Unknown]

NARRATIVE: CASE EVENT DATE: 2018
